FAERS Safety Report 6912131-2 (Version None)
Quarter: 2010Q3

REPORT INFORMATION
  Report Type: 
  Country: None (occurrence: None)
  Receive Date: 20100806
  Receipt Date: 20080103
  Transmission Date: 20110219
  Serious: No
  Sender: FDA-Public Use
  Company Number: US-PFIZER INC-2007108902

PATIENT
  Sex: Male
  Weight: 95.454 kg

DRUGS (4)
  1. DETROL LA [Suspect]
     Indication: HYPERTONIC BLADDER
     Route: 048
     Dates: start: 20071220
  2. TENORMIN [Concomitant]
     Indication: PROPHYLAXIS
  3. ZOCOR [Concomitant]
     Indication: BLOOD CHOLESTEROL ABNORMAL
  4. NIACIN [Concomitant]
     Indication: BLOOD TRIGLYCERIDES ABNORMAL

REACTIONS (1)
  - DRUG INEFFECTIVE [None]
